FAERS Safety Report 8479915-3 (Version None)
Quarter: 2012Q2

REPORT INFORMATION
  Report Type: 
  Country: None (occurrence: None)
  Receive Date: 20120629
  Receipt Date: 20120615
  Transmission Date: 20120825
  Serious: No
  Sender: FDA-Public Use
  Company Number: US-ASTRAZENECA-2012SE22961

PATIENT
  Age: 64 Year
  Sex: Female
  Weight: 97.5 kg

DRUGS (6)
  1. SEROQUEL [Suspect]
     Route: 048
  2. PRISTIQ [Concomitant]
  3. DEPAKOTE [Concomitant]
  4. OMEPRAZOLE [Suspect]
     Indication: GASTROOESOPHAGEAL REFLUX DISEASE
     Dosage: GENERIC
     Route: 048
     Dates: start: 20120228
  5. NEXIUM [Suspect]
     Indication: ABDOMINAL PAIN UPPER
     Route: 048
  6. HYDROXYZINE [Concomitant]

REACTIONS (9)
  - ABDOMINAL PAIN UPPER [None]
  - ABDOMINAL DISCOMFORT [None]
  - TREMOR [None]
  - FATIGUE [None]
  - DEMENTIA [None]
  - ANXIETY [None]
  - CHEST PAIN [None]
  - GASTROOESOPHAGEAL REFLUX DISEASE [None]
  - BIPOLAR DISORDER [None]
